FAERS Safety Report 9219032 (Version 2)
Quarter: 2013Q2

REPORT INFORMATION
  Report Type: Report from Study
  Country: BR (occurrence: BR)
  Receive Date: 20130409
  Receipt Date: 20130610
  Transmission Date: 20140414
  Serious: Yes (Other)
  Sender: FDA-Public Use
  Company Number: PHHY2013BR033543

PATIENT
  Sex: Female

DRUGS (9)
  1. TRILEPTAL [Suspect]
     Indication: HALLUCINATION
     Dosage: 600 MG, TID
     Route: 048
  2. FRONTAL [Suspect]
     Indication: DEPRESSION
     Dosage: 1 MG, BID
  3. TRYPTANOL [Suspect]
     Indication: HALLUCINATION
     Dosage: 750 MG, QHS
  4. ROHYPNOL [Suspect]
     Indication: INSOMNIA
     Dosage: 1 DF, QHS
  5. GLIFAGE [Concomitant]
     Indication: HEPATIC STEATOSIS
     Dosage: 2 MG PER DAY
     Route: 048
  6. SOMALGIN [Concomitant]
     Dosage: 100 MG PER DAY
     Route: 048
  7. ARADOIS [Concomitant]
     Dosage: 100 MG PER DAY
     Route: 048
  8. AMLODIPINE [Concomitant]
     Dosage: UNK UKN, UNK
     Route: 048
  9. LEVAMLODIPINE [Concomitant]
     Dosage: UNK UKN, UNK
     Route: 048

REACTIONS (14)
  - Suicidal ideation [Recovered/Resolved]
  - Loss of consciousness [Recovered/Resolved]
  - Hallucination [Not Recovered/Not Resolved]
  - Drug dependence [Unknown]
  - Calculus urinary [Recovered/Resolved]
  - Daydreaming [Not Recovered/Not Resolved]
  - Hypertension [Not Recovered/Not Resolved]
  - Amnesia [Not Recovered/Not Resolved]
  - Hearing impaired [Not Recovered/Not Resolved]
  - Lung disorder [Not Recovered/Not Resolved]
  - Affective disorder [Unknown]
  - Blood cholesterol increased [Not Recovered/Not Resolved]
  - Abnormal behaviour [Unknown]
  - Agitation [Recovered/Resolved]
